FAERS Safety Report 4713579-7 (Version None)
Quarter: 2005Q3

REPORT INFORMATION
  Report Type: 
  Country: None (occurrence: None)
  Receive Date: 20050712
  Receipt Date: 20050628
  Transmission Date: 20060218
  Serious: Yes (Hospitalization)
  Sender: FDA-Public Use
  Company Number: 2005AL002483

PATIENT
  Sex: Male

DRUGS (1)
  1. INDAPAMIDE [Suspect]
     Dosage: 1.25 MG

REACTIONS (2)
  - BLOOD SODIUM DECREASED [None]
  - HYPOTENSION [None]
